FAERS Safety Report 25546115 (Version 3)
Quarter: 2025Q4

REPORT INFORMATION
  Report Type: Spontaneous
  Country: US (occurrence: US)
  Receive Date: 20250712
  Receipt Date: 20251212
  Transmission Date: 20260117
  Serious: Yes (Other)
  Sender: SANOFI AVENTIS
  Company Number: US-SA-2025SA195389

PATIENT
  Age: 57 Year
  Sex: Female

DRUGS (1)
  1. KEVZARA [Suspect]
     Active Substance: SARILUMAB
     Indication: Rheumatoid arthritis
     Dosage: 200 MG, QOW
     Route: 058
     Dates: start: 202506

REACTIONS (9)
  - Angina pectoris [Unknown]
  - Atrial fibrillation [Unknown]
  - Joint swelling [Unknown]
  - Arthralgia [Unknown]
  - Mental disorder [Unknown]
  - General physical condition abnormal [Unknown]
  - Diarrhoea [Unknown]
  - Nausea [Unknown]
  - Sleep apnoea syndrome [Unknown]

NARRATIVE: CASE EVENT DATE: 20250101
